FAERS Safety Report 9160882 (Version 2)
Quarter: 2013Q1

REPORT INFORMATION
  Report Type: Spontaneous
  Country: US (occurrence: None)
  Receive Date: 20130215
  Receipt Date: 20130318
  Transmission Date: 20140127
  Serious: Yes (Other)
  Sender: FDA-Public Use
  Company Number: ACO_34151_2013

PATIENT
  Age: 82 Year
  Sex: Female
  Weight: 65.8 kg

DRUGS (7)
  1. AMPYRA [Suspect]
     Indication: PRODUCT USED FOR UNKNOWN INDICATION
     Dates: start: 201010
  2. BACLOFEN (BACLOFEN) [Concomitant]
  3. AMITRIPTYLINE (AMITRIPTYLINE) [Concomitant]
  4. DIGOXIN (DIGOXIN) [Concomitant]
  5. METFORMIN (METFORMIN) [Concomitant]
  6. ALL OTHER THERAPEUTIC PRODUCTS [Concomitant]
  7. NEUROTRONIN (GABAPENTIN) [Concomitant]

REACTIONS (3)
  - Loss of consciousness [None]
  - Abnormal dreams [None]
  - Road traffic accident [None]
